FAERS Safety Report 9152909 (Version 1)
Quarter: 2013Q1

REPORT INFORMATION
  Report Type: Spontaneous
  Country: US (occurrence: US)
  Receive Date: 20130124
  Receipt Date: 20130124
  Transmission Date: 20140127
  Serious: Yes (Hospitalization, Other)
  Sender: FDA-Public Use
  Company Number: US-RB-048865-13

PATIENT
  Age: 46 Year
  Sex: Female

DRUGS (1)
  1. SUBOXONE TABLET [Suspect]
     Indication: PRODUCT USED FOR UNKNOWN INDICATION
     Dosage: DOSING DETAILS UNKNOWN
     Route: 065

REACTIONS (5)
  - Ovarian cyst [Recovered/Resolved]
  - Uterine disorder [Recovered/Resolved]
  - Intestinal obstruction [Recovered/Resolved]
  - Appendix disorder [Recovered/Resolved]
  - Swelling [Not Recovered/Not Resolved]
